FAERS Safety Report 18282827 (Version 2)
Quarter: 2020Q4

REPORT INFORMATION
  Report Type: Spontaneous
  Country: US (occurrence: US)
  Receive Date: 20200918
  Receipt Date: 20201007
  Transmission Date: 20210113
  Serious: No
  Sender: FDA-Public Use
  Company Number: US-TEVA-2020-US-1828851

PATIENT
  Sex: Male

DRUGS (2)
  1. WARFARIN SODIUM TEVA [Suspect]
     Active Substance: WARFARIN SODIUM
     Route: 065
  2. WARFARIN SODIUM TEVA [Suspect]
     Active Substance: WARFARIN SODIUM
     Route: 065

REACTIONS (2)
  - Product substitution issue [Unknown]
  - International normalised ratio increased [Not Recovered/Not Resolved]
